FAERS Safety Report 5204972-7 (Version None)
Quarter: 2007Q1

REPORT INFORMATION
  Report Type: 
  Country: None (occurrence: None)
  Receive Date: 20070110
  Receipt Date: 20060920
  Transmission Date: 20070707
  Serious: No
  Sender: FDA-Public Use
  Company Number: US-BRISTOL-MYERS SQUIBB COMPANY-13516596

PATIENT
  Age: 13 Year
  Sex: Male
  Weight: 45 kg

DRUGS (3)
  1. ABILIFY [Suspect]
     Indication: BIPOLAR DISORDER
     Route: 048
  2. HALOPERIDOL [Concomitant]
     Dates: start: 20050501, end: 20060101
  3. TYLENOL [Concomitant]

REACTIONS (3)
  - HEADACHE [None]
  - TARDIVE DYSKINESIA [None]
  - TEMPERATURE INTOLERANCE [None]
